FAERS Safety Report 11674982 (Version 5)
Quarter: 2016Q2

REPORT INFORMATION
  Report Type: Report from Study
  Country: US (occurrence: US)
  Receive Date: 20151028
  Receipt Date: 20160517
  Transmission Date: 20160815
  Serious: Yes (Hospitalization, Other)
  Sender: FDA-Public Use
  Company Number: US-MDT-ADR-2015-02035

PATIENT
  Age: 64 Year
  Sex: Female

DRUGS (13)
  1. COMPOUNDED BACLOFEN [Suspect]
     Active Substance: BACLOFEN
     Dosage: 44.03MCG/DAY
     Route: 037
     Dates: start: 20151130
  2. FENTANYL. [Suspect]
     Active Substance: FENTANYL
     Dosage: 5.87MCG/DAY
     Route: 037
     Dates: start: 20151130
  3. TRAMADOL. [Suspect]
     Active Substance: TRAMADOL
     Route: 048
  4. COMPOUNDED BACLOFEN [Suspect]
     Active Substance: BACLOFEN
     Dosage: 199.9MCG/DAY
     Route: 037
     Dates: start: 20151007, end: 20151008
  5. TIZANIDINE. [Suspect]
     Active Substance: TIZANIDINE
     Route: 048
  6. FENTANYL. [Suspect]
     Active Substance: FENTANYL
     Dosage: 12.49MCG/DAY
     Route: 037
     Dates: start: 20151007, end: 20151008
  7. COMPOUNDED BACLOFEN [Suspect]
     Active Substance: BACLOFEN
     Dosage: 39.99MCG/DAY
     Route: 037
     Dates: start: 20151105, end: 20151130
  8. GABAPENTIN. [Suspect]
     Active Substance: GABAPENTIN
     Route: 048
  9. COMPOUNDED BACLOFEN [Suspect]
     Active Substance: BACLOFEN
     Dosage: 25.09MCG/DAY
     Route: 037
     Dates: start: 20160204
  10. FENTANYL. [Suspect]
     Active Substance: FENTANYL
     Dosage: 10.04MCG/DAY
     Route: 037
     Dates: start: 20160204
  11. COMPOUNDED BACLOFEN [Suspect]
     Active Substance: BACLOFEN
     Dosage: 69.96MCG/DAY
     Route: 037
     Dates: start: 20151014, end: 20151020
  12. FENTANYL. [Suspect]
     Active Substance: FENTANYL
     Dosage: 4.366MCG/DAY
     Route: 037
     Dates: start: 20151014, end: 20151020
  13. FENTANYL. [Suspect]
     Active Substance: FENTANYL
     Dosage: 5.33MCG/DAY
     Route: 037
     Dates: start: 20151105, end: 20151130

REACTIONS (4)
  - Asthenia [Recovered/Resolved]
  - Limb discomfort [Recovered/Resolved]
  - Post procedural complication [Recovered/Resolved]
  - Muscular weakness [Recovered/Resolved]

NARRATIVE: CASE EVENT DATE: 20151007
